FAERS Safety Report 4946515-9 (Version None)
Quarter: 2006Q1

REPORT INFORMATION
  Report Type: 
  Country: None (occurrence: None)
  Receive Date: 20060313
  Receipt Date: 20060303
  Transmission Date: 20060701
  Serious: Yes (Death)
  Sender: FDA-Public Use
  Company Number: 060306-0000187

PATIENT
  Age: 18 Year
  Sex: Female

DRUGS (3)
  1. METHAMPHETAMINE HYDROCHLORIDE [Suspect]
     Dosage: PO
     Route: 048
  2. JIMSON WEED SEED [Suspect]
     Dosage: PO
     Route: 048
  3. AMPHETAMINE [Suspect]
     Dosage: PO
     Route: 048

REACTIONS (4)
  - CARDIO-RESPIRATORY ARREST [None]
  - DISORIENTATION [None]
  - DRUG ABUSER [None]
  - INTENTIONAL DRUG MISUSE [None]
